FAERS Safety Report 6727597-0 (Version None)
Quarter: 2010Q2

REPORT INFORMATION
  Report Type: 
  Country: None (occurrence: None)
  Receive Date: 20100517
  Receipt Date: 20100217
  Transmission Date: 20101027
  Serious: No
  Sender: FDA-Public Use
  Company Number: US-BAYER-201014765NA

PATIENT
  Age: 82 Year
  Sex: Male
  Weight: 73 kg

DRUGS (7)
  1. ULTRAVIST 370 [Suspect]
     Indication: DYSPNOEA
     Dosage: TOTAL DAILY DOSE: 100 ML  UNIT DOSE: 500 ML
     Route: 042
     Dates: start: 20100217, end: 20100217
  2. PREDNISONE [Concomitant]
  3. ROSUVASTATIN [Concomitant]
  4. OMEPRAZOLE [Concomitant]
  5. ACULAR [Concomitant]
  6. TOPROL-XL [Concomitant]
  7. DOXAZOSIN MESYLATE [Concomitant]

REACTIONS (2)
  - SCRATCH [None]
  - URTICARIA [None]
